FAERS Safety Report 5771828-0 (Version None)
Quarter: 2008Q2

REPORT INFORMATION
  Report Type: 
  Country: None (occurrence: None)
  Receive Date: 20080613
  Receipt Date: 20080609
  Transmission Date: 20081010
  Serious: Yes (Other)
  Sender: FDA-Public Use
  Company Number: A0724177A

PATIENT
  Age: 5 Year
  Sex: Male
  Weight: 18.7 kg

DRUGS (6)
  1. LAMICTAL [Suspect]
     Dosage: 62.5MG PER DAY
     Route: 048
     Dates: start: 20071214, end: 20080317
  2. KLONOPIN [Concomitant]
     Dosage: .1MG TWICE PER DAY
  3. CALCIUM CARBONATE [Concomitant]
  4. IRON [Concomitant]
  5. VITAMIN D [Concomitant]
  6. MIRALAX [Concomitant]

REACTIONS (5)
  - CONVULSION [None]
  - INSOMNIA [None]
  - IRRITABILITY [None]
  - PERSONALITY CHANGE [None]
  - TREMOR [None]
